FAERS Safety Report 9691701 (Version 1)
Quarter: 2013Q4

REPORT INFORMATION
  Report Type: Spontaneous
  Country: US (occurrence: US)
  Receive Date: 20131115
  Receipt Date: 20131115
  Transmission Date: 20140711
  Serious: No
  Sender: FDA-Public Use
  Company Number: US-BIOGENIDEC-2013BI072522

PATIENT
  Age: 45 Year
  Sex: Male

DRUGS (13)
  1. TECFIDERA [Suspect]
     Indication: MULTIPLE SCLEROSIS
     Dates: start: 201306
  2. TECFIDERA [Suspect]
     Indication: MULTIPLE SCLEROSIS
     Route: 048
     Dates: start: 20130712
  3. TECFIDERA [Suspect]
     Indication: MULTIPLE SCLEROSIS
     Route: 048
  4. AMPYRA [Concomitant]
  5. PRISTIQ [Concomitant]
  6. MODAFINIL [Concomitant]
  7. OXYBUTYNIN CHLORIDE [Concomitant]
  8. ROPINIROLE [Concomitant]
  9. NAPROSYN [Concomitant]
  10. VIT D [Concomitant]
  11. LEVOTHYROXINE SODIUM [Concomitant]
  12. PROVIGIL [Concomitant]
  13. BACLOFEN [Concomitant]

REACTIONS (1)
  - Flushing [Recovered/Resolved]
